FAERS Safety Report 4616416-4 (Version None)
Quarter: 2005Q1

REPORT INFORMATION
  Report Type: 
  Country: None (occurrence: None)
  Receive Date: 20050321
  Receipt Date: 20050308
  Transmission Date: 20050727
  Serious: Yes (Other)
  Sender: FDA-Public Use
  Company Number: 2005042689

PATIENT
  Age: 36 Year
  Sex: Female
  Weight: 65.7716 kg

DRUGS (3)
  1. NEURONTIN [Suspect]
     Indication: EPILEPSY
     Dosage: 100 MG (100 MG, 1 IN 1 D), ORAL
     Route: 048
  2. NEURONTIN [Suspect]
     Indication: PETIT MAL EPILEPSY
     Dosage: 100 MG (100 MG, 1 IN 1 D), ORAL
     Route: 048
  3. CARBAMAZEPINE [Concomitant]

REACTIONS (3)
  - CONVULSION [None]
  - HEADACHE [None]
  - STRESS [None]
